FAERS Safety Report 8242293-9 (Version None)
Quarter: 2012Q1

REPORT INFORMATION
  Report Type: 
  Country: None (occurrence: None)
  Receive Date: 20120329
  Receipt Date: 20120326
  Transmission Date: 20120608
  Serious: No
  Sender: FDA-Public Use
  Company Number: US-PFIZER INC-2012051434

PATIENT
  Sex: Female
  Weight: 87.528 kg

DRUGS (10)
  1. LEVOTHYROXINE [Concomitant]
     Indication: HYPOTHYROIDISM
     Dosage: 175 UG, DAILY
  2. BENADRYL [Suspect]
     Dosage: 25 MG, UNK
     Route: 048
  3. BISOPROLOL FUMARATE AND HYDROCHLOROTHIAZIDE [Concomitant]
     Indication: DIURETIC THERAPY
     Dosage: 5/6.25MG, DAILY
  4. CODEINE SULFATE [Suspect]
     Dosage: UNK
  5. ALDACTONE [Concomitant]
     Indication: DIURETIC THERAPY
     Dosage: 25 MG, DAILY
  6. METFORMIN [Concomitant]
     Indication: DIABETES MELLITUS
     Dosage: 1000 MG, 2X/DAY
  7. GLIMEPIRIDE [Concomitant]
     Indication: DIABETES MELLITUS
     Dosage: 2 MG, DAILY
  8. LYRICA [Suspect]
     Indication: FIBROMYALGIA
     Dosage: 150 MG, 2X/DAY
     Route: 048
     Dates: start: 20110801, end: 20120201
  9. HYDROCODONE BITARTRATE [Suspect]
     Dosage: UNK
  10. ULTRAM ER [Suspect]
     Indication: FIBROMYALGIA
     Dosage: 100 MG, 2X/DAY
     Route: 048

REACTIONS (8)
  - ARTHRALGIA [None]
  - HYPERSENSITIVITY [None]
  - PAIN [None]
  - MYALGIA [None]
  - SKIN BURNING SENSATION [None]
  - PRURITUS [None]
  - HYPERSOMNIA [None]
  - DRUG INEFFECTIVE [None]
